FAERS Safety Report 9135459 (Version 1)
Quarter: 2013Q1

REPORT INFORMATION
  Report Type: Spontaneous
  Country: CH (occurrence: None)
  Receive Date: 20130131
  Receipt Date: 20130131
  Transmission Date: 20140127
  Serious: Yes (Death, Hospitalization)
  Sender: FDA-Public Use
  Company Number: 2013CP000004

PATIENT
  Age: 47 Year
  Sex: Male

DRUGS (5)
  1. PERFALGAN [Suspect]
     Indication: ODYNOPHAGIA
     Dosage: 500  MG; BID; IV?11/10/2012  -  11/26/2012
     Route: 042
     Dates: start: 20121110, end: 20121126
  2. DAFALGAN [Suspect]
     Dosage: 500 MG; BID; PO?11/11/2012  -  11/12/2012
     Route: 048
     Dates: start: 20121111, end: 20121112
  3. MORPHINE SULFATE [Suspect]
     Indication: ODYNOPHAGIA
  4. DIFLUCAN [Suspect]
     Indication: CANDIDA INFECTION
     Dosage: 400 MG; QD; IV?11/21/2012  -  11/22/2012
     Route: 042
     Dates: start: 20121121, end: 20121122
  5. METHADONE [Suspect]
     Indication: ODYNOPHAGIA

REACTIONS (8)
  - Multi-organ failure [None]
  - Candida infection [None]
  - Alanine aminotransferase increased [None]
  - Aspartate aminotransferase increased [None]
  - Blood bilirubin increased [None]
  - Liver injury [None]
  - Ear infection fungal [None]
  - Oral candidiasis [None]
